FAERS Safety Report 24315135 (Version 1)
Quarter: 2024Q3

REPORT INFORMATION
  Report Type: Spontaneous
  Country: DE (occurrence: DE)
  Receive Date: 20240913
  Receipt Date: 20240913
  Transmission Date: 20241017
  Serious: Yes (Hospitalization, Other)
  Sender: CHEPLAPHARM
  Company Number: DE-SA-2014SA053067

PATIENT
  Age: 52 Year
  Sex: Female

DRUGS (8)
  1. GANCICLOVIR [Suspect]
     Active Substance: GANCICLOVIR
     Indication: Antiviral prophylaxis
     Dosage: 5 MG/KG,QD?DAILY DOSE: 5 MILLIGRAM/KG
     Route: 042
  2. GANCICLOVIR [Suspect]
     Active Substance: GANCICLOVIR
     Indication: Cytomegalovirus infection
     Dosage: 5 MG/KG,QD?DAILY DOSE: 5 MILLIGRAM/KG
     Route: 042
  3. VALGANCICLOVIR [Suspect]
     Active Substance: VALGANCICLOVIR
     Indication: Cytomegalovirus infection
     Dosage: 900 MG,QD?DAILY DOSE: 900 MILLIGRAM
  4. VALGANCICLOVIR [Suspect]
     Active Substance: VALGANCICLOVIR
     Indication: Antiviral prophylaxis
     Dosage: 900 MG,QD?DAILY DOSE: 900 MILLIGRAM
  5. ALEMTUZUMAB [Suspect]
     Active Substance: ALEMTUZUMAB
     Indication: Prophylaxis against transplant rejection
     Dosage: 30 MG,UNK
  6. MYCOPHENOLATE MOFETIL [Suspect]
     Active Substance: MYCOPHENOLATE MOFETIL
     Indication: Prophylaxis against transplant rejection
     Dosage: 2000 MG,QD?DAILY DOSE: 2000 MILLIGRAM
  7. PREDNISOLONE [Suspect]
     Active Substance: PREDNISOLONE
     Indication: Prophylaxis against transplant rejection
     Dosage: 1000 MG,UNK
  8. TACROLIMUS [Suspect]
     Active Substance: TACROLIMUS
     Indication: Prophylaxis against transplant rejection
     Dosage: INITIAL TARGET LEVEL 8-10 AND 6-7 NG/MCL THEREAFTER

REACTIONS (9)
  - Oesophageal candidiasis [Unknown]
  - Cytomegalovirus infection [Unknown]
  - Cytomegalovirus gastroenteritis [Unknown]
  - Vomiting [Unknown]
  - Oesophagitis ulcerative [Unknown]
  - Diarrhoea [Unknown]
  - Pyrexia [Unknown]
  - Odynophagia [Unknown]
  - Drug ineffective [Unknown]
